FAERS Safety Report 14317988 (Version 1)
Quarter: 2017Q4

REPORT INFORMATION
  Report Type: Spontaneous
  Country: RO (occurrence: RO)
  Receive Date: 20171222
  Receipt Date: 20171222
  Transmission Date: 20180321
  Serious: Yes (Life-Threatening, Hospitalization, Other)
  Sender: FDA-Public Use
  Company Number: PHHY2017RO191656

PATIENT
  Age: 66 Year
  Sex: Male

DRUGS (2)
  1. AMOXICILLIN AND CLAVULANATE [Suspect]
     Active Substance: AMOXICILLIN\CLAVULANIC ACID
     Indication: DENTAL OPERATION
     Dosage: UNK
     Route: 065
  2. AMOXICILLIN AND CLAVULANATE [Suspect]
     Active Substance: AMOXICILLIN\CLAVULANIC ACID
     Indication: ABSCESS

REACTIONS (8)
  - Pruritus [Unknown]
  - Hypoalbuminaemia [Unknown]
  - Skin exfoliation [Unknown]
  - Dermatitis exfoliative [Recovered/Resolved]
  - Rash generalised [Unknown]
  - Hypergammaglobulinaemia [Unknown]
  - Leukocytosis [Unknown]
  - Urticaria [Unknown]
